FAERS Safety Report 14260351 (Version 3)
Quarter: 2021Q3

REPORT INFORMATION
  Report Type: Spontaneous
  Country: GB (occurrence: FR)
  Receive Date: 20171207
  Receipt Date: 20210729
  Transmission Date: 20211014
  Serious: Yes (Hospitalization, Other)
  Sender: FDA-Public Use
  Company Number: FR-FRESENIUS KABI-FK201710347

PATIENT
  Age: 41 Year
  Sex: Female
  Weight: 55 kg

DRUGS (40)
  1. GEMCITABINE. [Suspect]
     Active Substance: GEMCITABINE
     Indication: LYMPHOMA
     Dosage: UNKNOWN
     Route: 065
     Dates: start: 20150709
  2. PENTAMIDINE ISETIONATE [Concomitant]
     Active Substance: PENTAMIDINE ISETHIONATE
     Indication: PRODUCT USED FOR UNKNOWN INDICATION
     Dosage: UNK ()
     Route: 065
  3. LASILIX [Concomitant]
     Active Substance: FUROSEMIDE
     Indication: PRODUCT USED FOR UNKNOWN INDICATION
     Dosage: UNK
     Route: 065
     Dates: start: 20150813
  4. PERINDOPRIL [Concomitant]
     Active Substance: PERINDOPRIL
     Indication: HYPERTENSION
     Dosage: 2.5 MG, QD
     Route: 065
     Dates: end: 20151126
  5. IVABRADINE HYDROCHLORIDE [Concomitant]
     Active Substance: IVABRADINE HYDROCHLORIDE
     Indication: CARDIAC FAILURE
     Dosage: 2.5 MG, BID
     Route: 065
     Dates: start: 20150925
  6. RITUXIMAB. [Suspect]
     Active Substance: RITUXIMAB
     Indication: LYMPHOMA
     Dosage: UNKNOWN
     Route: 065
     Dates: start: 20150709
  7. DAKLINZA [Suspect]
     Active Substance: DACLATASVIR
     Indication: HEPATITIS C
     Dosage: 60 MG/ DAY
     Route: 048
     Dates: start: 20150203, end: 20150428
  8. VIREAD [Suspect]
     Active Substance: TENOFOVIR DISOPROXIL FUMARATE
     Indication: HEPATITIS B
     Dosage: 245 MG/ DAY
     Route: 048
     Dates: start: 20120516
  9. RIBAVIRIN. [Suspect]
     Active Substance: RIBAVIRIN
     Indication: HEPATITIS C
     Route: 048
     Dates: start: 20150203, end: 20150428
  10. OXALIPLATIN (MANUFACTURER UNKNOWN) [Suspect]
     Active Substance: OXALIPLATIN
     Dosage: UNKNOWN
     Route: 065
     Dates: start: 20150825, end: 20150825
  11. RITUXIMAB. [Suspect]
     Active Substance: RITUXIMAB
     Dosage: UNKNOWN
     Route: 065
     Dates: start: 20150521
  12. PLAVIX [Concomitant]
     Active Substance: CLOPIDOGREL BISULFATE
     Indication: CARDIAC FAILURE
     Dosage: UNK ()
     Route: 065
     Dates: end: 201508
  13. GRANOCYTE [Concomitant]
     Active Substance: LENOGRASTIM
     Indication: NEUTROPENIA
     Dosage: UNK ()
     Route: 065
     Dates: start: 20151102, end: 20151102
  14. PRAVASTATIN. [Concomitant]
     Active Substance: PRAVASTATIN
     Indication: CARDIAC FAILURE
     Route: 065
  15. OXALIPLATIN (MANUFACTURER UNKNOWN) [Suspect]
     Active Substance: OXALIPLATIN
     Dosage: UNKNOWN
     Route: 065
     Dates: start: 20150521
  16. GEMCITABINE. [Suspect]
     Active Substance: GEMCITABINE
     Dosage: UNKNOWN
     Route: 065
     Dates: start: 20150521
  17. ACETYLSALICYLATE LYSINE [Concomitant]
     Active Substance: ASPIRIN DL-LYSINE
     Indication: PRODUCT USED FOR UNKNOWN INDICATION
     Route: 065
  18. KAYEXALATE [Concomitant]
     Active Substance: SODIUM POLYSTYRENE SULFONATE
     Indication: PRODUCT USED FOR UNKNOWN INDICATION
     Dosage: UNK ()
     Route: 065
  19. BRILIQUE [Concomitant]
     Active Substance: TICAGRELOR
     Indication: CARDIAC FAILURE
     Dosage: 90 MG, BID
     Route: 065
     Dates: start: 20150812
  20. OXALIPLATIN (MANUFACTURER UNKNOWN) [Suspect]
     Active Substance: OXALIPLATIN
     Indication: LYMPHOMA
     Dosage: UNKNOWN
     Route: 065
     Dates: start: 20150709
  21. GEMCITABINE. [Suspect]
     Active Substance: GEMCITABINE
     Dosage: UNKNOWN
     Route: 065
     Dates: start: 20150908, end: 20150908
  22. GEMCITABINE. [Suspect]
     Active Substance: GEMCITABINE
     Dosage: UNKNOWN
     Route: 065
     Dates: start: 20150618
  23. CELLTOP [Suspect]
     Active Substance: ETOPOSIDE
     Indication: LYMPHOMA
     Dosage: 50 MG, QD
     Route: 048
     Dates: start: 20151019, end: 20151102
  24. REBETOL [Suspect]
     Active Substance: RIBAVIRIN
     Indication: HEPATITIS C
     Dosage: 400 MG, 2 PER DAY
     Route: 048
     Dates: start: 20150203, end: 20150428
  25. NEORAL [Concomitant]
     Active Substance: CYCLOSPORINE
     Indication: IMMUNOSUPPRESSION
     Dosage: 50 MG, QD
     Route: 065
     Dates: start: 1986
  26. OXALIPLATIN (MANUFACTURER UNKNOWN) [Suspect]
     Active Substance: OXALIPLATIN
     Dosage: UNKNOWN
     Route: 065
     Dates: start: 20150908, end: 20150908
  27. OXALIPLATIN (MANUFACTURER UNKNOWN) [Suspect]
     Active Substance: OXALIPLATIN
     Dosage: UNKNOWN
     Route: 065
     Dates: start: 20150618
  28. GEMCITABINE. [Suspect]
     Active Substance: GEMCITABINE
     Dosage: UNKNOWN
     Route: 065
     Dates: start: 20150507
  29. DELURSAN [Concomitant]
     Active Substance: URSODIOL
     Indication: PRODUCT USED FOR UNKNOWN INDICATION
     Dosage: 500 MG, BID
     Route: 065
  30. CLOPIDOGREL [Concomitant]
     Active Substance: CLOPIDOGREL BISULFATE
     Indication: CARDIAC FAILURE
     Dosage: UNK ()
     Route: 065
     Dates: start: 20150811, end: 20150811
  31. OXALIPLATIN (MANUFACTURER UNKNOWN) [Suspect]
     Active Substance: OXALIPLATIN
     Dosage: UNKNOWN
     Route: 065
     Dates: start: 20150507
  32. RITUXIMAB. [Suspect]
     Active Substance: RITUXIMAB
     Dosage: UNKNOWN
     Route: 065
     Dates: start: 20150908, end: 20150908
  33. RITUXIMAB. [Suspect]
     Active Substance: RITUXIMAB
     Dosage: UNKNOWN
     Route: 065
     Dates: start: 20150507
  34. SOVALDI [Suspect]
     Active Substance: SOFOSBUVIR
     Indication: HEPATITIS C
     Dosage: 400 MG/ DAY
     Route: 048
     Dates: start: 20150203, end: 20150428
  35. SOLUPRED [Concomitant]
     Indication: PRODUCT USED FOR UNKNOWN INDICATION
     Dosage: 5 MG, QD
     Route: 065
  36. GEMCITABINE. [Suspect]
     Active Substance: GEMCITABINE
     Dosage: UNKNOWN
     Route: 065
     Dates: start: 20150825, end: 20150825
  37. RITUXIMAB. [Suspect]
     Active Substance: RITUXIMAB
     Dosage: UNKNOWN
     Route: 065
     Dates: start: 20150618
  38. RITUXIMAB. [Suspect]
     Active Substance: RITUXIMAB
     Dosage: UNKNOWN
     Route: 065
     Dates: start: 20150825, end: 20150825
  39. ENDOXAN [Concomitant]
     Active Substance: CYCLOPHOSPHAMIDE
     Indication: LYMPHOMA
     Dosage: 50 MG, QD
     Route: 065
     Dates: start: 20151126
  40. OMEPRAZOLE. [Concomitant]
     Active Substance: OMEPRAZOLE
     Indication: PRODUCT USED FOR UNKNOWN INDICATION
     Dosage: 20 MG, QD
     Route: 065

REACTIONS (4)
  - Neutropenia [Recovered/Resolved]
  - Diffuse large B-cell lymphoma [Not Recovered/Not Resolved]
  - Anaemia [Unknown]
  - Left ventricular failure [Not Recovered/Not Resolved]

NARRATIVE: CASE EVENT DATE: 2015
